FAERS Safety Report 17744009 (Version 1)
Quarter: 2020Q2

REPORT INFORMATION
  Report Type: Spontaneous
  Country: DE (occurrence: DE)
  Receive Date: 20200505
  Receipt Date: 20200505
  Transmission Date: 20200714
  Serious: Yes (Other)
  Sender: FDA-Public Use
  Company Number: NVSC2020DE040705

PATIENT
  Sex: Male
  Weight: 70 kg

DRUGS (2)
  1. RITALIN [Suspect]
     Active Substance: METHYLPHENIDATE HYDROCHLORIDE
     Indication: ATTENTION DEFICIT HYPERACTIVITY DISORDER
     Dosage: 5 DF, QD
     Route: 065
     Dates: start: 2006
  2. RITALIN [Suspect]
     Active Substance: METHYLPHENIDATE HYDROCHLORIDE
     Dosage: 40 MG QD (1-1-1-1, ONE TABLET EVERY 2 HOURS, NO RITALIN AT THE WEEKENDS)
     Route: 065
     Dates: start: 201303

REACTIONS (4)
  - Influenza [Recovered/Resolved]
  - Drug intolerance [Unknown]
  - Pneumonia [Unknown]
  - Leukopenia [Recovered/Resolved]

NARRATIVE: CASE EVENT DATE: 201912
